FAERS Safety Report 20917306 (Version 1)
Quarter: 2022Q2

REPORT INFORMATION
  Report Type: Spontaneous
  Country: US (occurrence: US)
  Receive Date: 20220606
  Receipt Date: 20220606
  Transmission Date: 20220720
  Serious: No
  Sender: FDA-Public Use
  Company Number: US-BRISTOL-MYERS SQUIBB COMPANY-2022-040888

PATIENT
  Age: 75 Year
  Sex: Male
  Weight: 83.914 kg

DRUGS (1)
  1. REVLIMID [Suspect]
     Active Substance: LENALIDOMIDE
     Indication: Plasma cell myeloma
     Dosage: 21D OF 28D CYCLE
     Route: 048
     Dates: start: 20220314

REACTIONS (2)
  - Decreased appetite [Unknown]
  - Fatigue [Unknown]
